FAERS Safety Report 16342903 (Version 1)
Quarter: 2019Q2

REPORT INFORMATION
  Report Type: Spontaneous
  Country: US (occurrence: US)
  Receive Date: 20190521
  Receipt Date: 20190521
  Transmission Date: 20190711
  Serious: Yes (Hospitalization)
  Sender: FDA-Public Use
  Company Number: None

PATIENT
  Age: 33 Year
  Sex: Female

DRUGS (9)
  1. COSENTYX [Suspect]
     Active Substance: SECUKINUMAB
     Indication: PSORIASIS
     Dosage: ?          OTHER FREQUENCY:Q 4 WEEKS;?
     Route: 058
     Dates: start: 20190116
  2. ESCITALOPRAM [Concomitant]
     Active Substance: ESCITALOPRAM OXALATE
  3. ONDANSETRON TAB ODT 4 MG [Concomitant]
  4. CIPROFLOXACIN 250MG [Concomitant]
     Active Substance: CIPROFLOXACIN
  5. NP THYROID 30MG [Concomitant]
  6. PROPRANOLOL 20MG [Concomitant]
     Active Substance: PROPRANOLOL HYDROCHLORIDE
  7. CLONAZEPAM 0.5MG [Concomitant]
     Active Substance: CLONAZEPAM
  8. FLUOXETINE 40MG [Concomitant]
     Active Substance: FLUOXETINE HYDROCHLORIDE
  9. PHENTERMINE 15MG [Concomitant]

REACTIONS (1)
  - Escherichia infection [None]

NARRATIVE: CASE EVENT DATE: 20190214
